FAERS Safety Report 5317280-0 (Version None)
Quarter: 2007Q2

REPORT INFORMATION
  Report Type: 
  Country: None (occurrence: None)
  Receive Date: 20070504
  Receipt Date: 20070424
  Transmission Date: 20071010
  Serious: Yes (Life-Threatening, Hospitalization)
  Sender: FDA-Public Use
  Company Number: NL-ABBOTT-06P-114-0353402-00

PATIENT
  Sex: Male
  Weight: 80 kg

DRUGS (30)
  1. KLACID [Suspect]
     Indication: MYCOBACTERIUM AVIUM COMPLEX INFECTION
     Route: 048
     Dates: start: 20060114, end: 20060325
  2. KLACID [Suspect]
     Dates: start: 20060325, end: 20060330
  3. BLINDED THERAPY [Suspect]
     Indication: HIV INFECTION
     Route: 048
     Dates: start: 20050706, end: 20060325
  4. BLINDED THERAPY [Suspect]
     Route: 048
     Dates: start: 20060405, end: 20060405
  5. BLINDED THERAPY [Suspect]
     Route: 048
     Dates: start: 20060411
  6. VIREAD [Suspect]
     Indication: HIV INFECTION
     Route: 048
     Dates: start: 20050706, end: 20060325
  7. VIREAD [Suspect]
     Route: 048
     Dates: start: 20060405, end: 20060405
  8. VIREAD [Suspect]
     Route: 048
     Dates: start: 20060411
  9. KALETRA [Concomitant]
     Indication: HIV INFECTION
     Route: 048
     Dates: start: 20050706, end: 20060325
  10. KALETRA [Concomitant]
     Route: 048
     Dates: start: 20060411
  11. SAQUINAVIR MESILATE [Concomitant]
     Indication: DRUG USE FOR UNKNOWN INDICATION
     Route: 048
     Dates: start: 20050706, end: 20060325
  12. GEMFIBROZIL [Concomitant]
     Indication: DRUG USE FOR UNKNOWN INDICATION
     Route: 048
     Dates: start: 20020605, end: 20060325
  13. EMTRICITABINE [Concomitant]
     Indication: HIV INFECTION
     Route: 048
     Dates: start: 20050706, end: 20060325
  14. EMTRICITABINE [Concomitant]
     Route: 048
     Dates: start: 20060411
  15. GLUCOPHAGE [Concomitant]
     Indication: DRUG USE FOR UNKNOWN INDICATION
     Route: 048
     Dates: start: 20060126, end: 20060325
  16. GLUCOPHAGE [Concomitant]
     Route: 048
  17. COTRIM [Concomitant]
     Indication: DRUG USE FOR UNKNOWN INDICATION
     Route: 048
     Dates: start: 19930524, end: 20060325
  18. ETHAMBUTOL DIHYDROCHLORIDE [Concomitant]
     Indication: DRUG USE FOR UNKNOWN INDICATION
     Route: 048
     Dates: start: 20060114, end: 20060325
  19. ETHAMBUTOL DIHYDROCHLORIDE [Concomitant]
     Route: 048
     Dates: start: 20060325, end: 20060403
  20. ISOPHANE INSULIN [Concomitant]
     Indication: DRUG USE FOR UNKNOWN INDICATION
     Route: 058
     Dates: start: 20060120
  21. INSULIN [Concomitant]
     Indication: DRUG USE FOR UNKNOWN INDICATION
  22. PREDNISONE TAB [Concomitant]
     Indication: DRUG USE FOR UNKNOWN INDICATION
     Route: 048
     Dates: start: 20060114
  23. FUZEON [Concomitant]
     Indication: HIV INFECTION
     Route: 048
     Dates: start: 20050706, end: 20060325
  24. FUZEON [Concomitant]
     Route: 048
     Dates: start: 20060411
  25. ACTRAPID [Concomitant]
     Indication: DRUG USE FOR UNKNOWN INDICATION
     Route: 058
     Dates: start: 20060301
  26. PREDNISOLONE ACETATE [Concomitant]
     Indication: DRUG USE FOR UNKNOWN INDICATION
     Route: 047
     Dates: start: 19970713
  27. FLUCONAZOLE [Concomitant]
     Indication: DRUG USE FOR UNKNOWN INDICATION
     Route: 048
     Dates: start: 19950720, end: 20060325
  28. FLUCITHAMIL [Concomitant]
     Indication: DRUG USE FOR UNKNOWN INDICATION
     Route: 047
  29. ALCON [Concomitant]
     Indication: DRUG USE FOR UNKNOWN INDICATION
     Route: 047
  30. PREDNISOLONE [Concomitant]
     Indication: DRUG USE FOR UNKNOWN INDICATION
     Route: 048
     Dates: start: 20060114

REACTIONS (4)
  - DYSPNOEA [None]
  - GASTROENTERITIS VIRAL [None]
  - PYREXIA [None]
  - RENAL FAILURE ACUTE [None]
